FAERS Safety Report 23432785 (Version 3)
Quarter: 2024Q1

REPORT INFORMATION
  Report Type: Report from Study
  Country: US (occurrence: US)
  Receive Date: 20240123
  Receipt Date: 20240304
  Transmission Date: 20240410
  Serious: Yes (Hospitalization, Other)
  Sender: FDA-Public Use
  Company Number: US-GILEAD-2024-0659209

PATIENT
  Age: 52 Year
  Sex: Female

DRUGS (5)
  1. AZTREONAM LYSINE [Suspect]
     Active Substance: AZTREONAM LYSINE
     Indication: Cystic fibrosis lung
     Dosage: UNK
     Route: 065
  2. AZTREONAM LYSINE [Suspect]
     Active Substance: AZTREONAM LYSINE
     Indication: Cystic fibrosis
  3. TRIKAFTA [Suspect]
     Active Substance: ELEXACAFTOR\IVACAFTOR\TEZACAFTOR
     Indication: Product used for unknown indication
     Dosage: UNK
     Route: 065
     Dates: end: 20220402
  4. TRIKAFTA [Suspect]
     Active Substance: ELEXACAFTOR\IVACAFTOR\TEZACAFTOR
     Dosage: UNK
     Route: 065
  5. ROSUVASTATIN CALCIUM [Concomitant]
     Active Substance: ROSUVASTATIN CALCIUM

REACTIONS (17)
  - Vertigo [Recovering/Resolving]
  - Intestinal obstruction [Recovering/Resolving]
  - Back pain [Recovering/Resolving]
  - Headache [Recovering/Resolving]
  - Blood glucose decreased [Not Recovered/Not Resolved]
  - Oxygen saturation decreased [Recovering/Resolving]
  - Hypertension [Recovering/Resolving]
  - Small intestinal obstruction [Recovering/Resolving]
  - Arteriosclerosis coronary artery [Unknown]
  - Hepatic enzyme increased [Unknown]
  - Blood creatinine decreased [Unknown]
  - Hiatus hernia [Unknown]
  - Cholelithiasis [Unknown]
  - Tracheal diverticulum [Unknown]
  - Dizziness [Unknown]
  - Balance disorder [Unknown]
  - Heart rate increased [Unknown]

NARRATIVE: CASE EVENT DATE: 20210101
